FAERS Safety Report 9729359 (Version 1)
Quarter: 2013Q4

REPORT INFORMATION
  Report Type: Spontaneous
  Country: US (occurrence: US)
  Receive Date: 20131204
  Receipt Date: 20131204
  Transmission Date: 20140711
  Serious: No
  Sender: FDA-Public Use
  Company Number: US-PFIZER INC-2013344872

PATIENT
  Age: 81 Year
  Sex: Female

DRUGS (8)
  1. CELEBREX [Suspect]
     Dosage: UNK
  2. DETROL [Suspect]
     Dosage: UNK
  3. VICODIN [Suspect]
     Dosage: UNK
  4. ZOCOR [Suspect]
     Dosage: UNK
  5. AMBIEN [Suspect]
     Dosage: UNK
  6. ASPIRIN [Suspect]
     Dosage: UNK
  7. BACTRIM [Suspect]
     Dosage: UNK
  8. PRAVACHOL [Suspect]
     Dosage: UNK

REACTIONS (1)
  - Drug hypersensitivity [Unknown]
